FAERS Safety Report 4316019-5 (Version None)
Quarter: 2004Q1

REPORT INFORMATION
  Report Type: 
  Country: None (occurrence: None)
  Receive Date: 20040311
  Receipt Date: 20040227
  Transmission Date: 20041129
  Serious: Yes (Life-Threatening)
  Sender: FDA-Public Use
  Company Number: 2004201730FR

PATIENT
  Age: 79 Year
  Sex: Male
  Weight: 90 kg

DRUGS (8)
  1. PROSTIN VR (ALPROSTADIL) [Suspect]
     Dosage: 0.5 MG/50 ML, IV
     Route: 042
     Dates: start: 20030728, end: 20030729
  2. PROSTIN VR (ALPROSTADIL) [Suspect]
     Dosage: 0.5 MG/50 ML, IV
     Route: 042
     Dates: start: 20030730
  3. ACETYLCYSTEINE [Suspect]
     Dosage: 5G/25ML, IV
     Route: 042
     Dates: start: 20030728, end: 20030730
  4. TIMACOR [Concomitant]
  5. COZAAR [Concomitant]
  6. BI-TILDIEM [Concomitant]
  7. GLYBURIDE [Concomitant]
  8. PREVISCAN (FLUINDIONE) [Concomitant]

REACTIONS (16)
  - AGITATION [None]
  - ATRIAL FIBRILLATION [None]
  - BLOOD PRESSURE FLUCTUATION [None]
  - CARDIAC ARREST [None]
  - CHOLESTASIS [None]
  - CYTOLYTIC HEPATITIS [None]
  - DILATATION VENTRICULAR [None]
  - ELECTROMECHANICAL DISSOCIATION [None]
  - HAEMODYNAMIC INSTABILITY [None]
  - HAEMORRHAGE [None]
  - HEPATIC FAILURE [None]
  - LACTIC ACIDOSIS [None]
  - RENAL FAILURE ACUTE [None]
  - SOMNOLENCE [None]
  - VENTRICULAR HYPOKINESIA [None]
  - VENTRICULAR TACHYCARDIA [None]
